FAERS Safety Report 23403046 (Version 1)
Quarter: 2024Q1

REPORT INFORMATION
  Report Type: Spontaneous
  Country: US (occurrence: US)
  Receive Date: 20240115
  Receipt Date: 20240115
  Transmission Date: 20240410
  Serious: Yes (Hospitalization, Other)
  Sender: FDA-Public Use
  Company Number: US-STERISCIENCE B.V.-2023-ST-001385

PATIENT
  Age: 42 Year
  Sex: Male

DRUGS (7)
  1. MIDAZOLAM [Suspect]
     Active Substance: MIDAZOLAM
     Indication: Epilepsy
     Dosage: UNK
     Route: 065
  2. FOSPHENYTOIN [Suspect]
     Active Substance: FOSPHENYTOIN
     Indication: Epilepsy
     Dosage: UNK
     Route: 065
  3. FENTANYL [Suspect]
     Active Substance: FENTANYL\FENTANYL CITRATE
     Indication: Epilepsy
     Dosage: UNK
     Route: 065
  4. PROPOFOL [Suspect]
     Active Substance: PROPOFOL
     Indication: Epilepsy
     Dosage: UNK
     Route: 065
  5. PROPOFOL [Suspect]
     Active Substance: PROPOFOL
     Dosage: 4.5 MILLIGRAM/KILOGRAM, QH, FOR 72 HOURS
     Route: 042
  6. VALPROIC ACID [Concomitant]
     Active Substance: VALPROIC ACID
     Indication: Epilepsy
     Dosage: UNK
     Route: 065
  7. LACOSAMIDE [Concomitant]
     Active Substance: LACOSAMIDE
     Indication: Epilepsy
     Dosage: UNK
     Route: 065

REACTIONS (1)
  - Drug ineffective for unapproved indication [Unknown]
